FAERS Safety Report 4952107-8 (Version None)
Quarter: 2006Q1

REPORT INFORMATION
  Report Type: 
  Country: None (occurrence: None)
  Receive Date: 20060320
  Receipt Date: 20060308
  Transmission Date: 20060701
  Serious: Yes (Hospitalization, Other)
  Sender: FDA-Public Use
  Company Number: 2006003394

PATIENT
  Age: 46 Year
  Sex: Male

DRUGS (6)
  1. ATORVASTATIN CALCIUM [Suspect]
     Indication: BLOOD CHOLESTEROL
     Dosage: 10 MG (10 MG, 1 IN 1 D), ORAL
     Route: 048
  2. HALOPERIDOL [Concomitant]
  3. SEROQUEL [Concomitant]
  4. TRIHEXYPHENIDYL HCL [Concomitant]
  5. CLONAZEPAM [Concomitant]
  6. ALLOPURINOL [Concomitant]

REACTIONS (5)
  - HERNIA [None]
  - MUSCLE ATROPHY [None]
  - MUSCULAR WEAKNESS [None]
  - PAIN IN EXTREMITY [None]
  - TREATMENT NONCOMPLIANCE [None]
